FAERS Safety Report 6671578-2 (Version None)
Quarter: 2010Q2

REPORT INFORMATION
  Report Type: 
  Country: None (occurrence: None)
  Receive Date: 20100407
  Receipt Date: 20100401
  Transmission Date: 20101027
  Serious: Yes (Hospitalization)
  Sender: FDA-Public Use
  Company Number: FR-ASTRAZENECA-2009SE20715

PATIENT
  Age: 89 Year
  Sex: Female

DRUGS (7)
  1. NEXIUM [Interacting]
     Indication: HIATUS HERNIA
     Route: 048
     Dates: start: 20090101
  2. SEROPLEX [Interacting]
     Indication: DEPRESSION
     Route: 048
     Dates: start: 20080101, end: 20090101
  3. MOPRAL [Suspect]
     Indication: HIATUS HERNIA
     Route: 048
     Dates: start: 20060101, end: 20090101
  4. STABLON [Suspect]
     Indication: DEPRESSION
     Route: 048
     Dates: start: 20090101
  5. FORTEO [Concomitant]
     Indication: OSTEOPOROSIS
     Route: 058
     Dates: start: 20080701
  6. TAREG [Concomitant]
     Indication: HYPERTENSION
     Route: 048
     Dates: start: 20081001
  7. DAFALGAN [Concomitant]
     Route: 065

REACTIONS (4)
  - BLOOD SODIUM DECREASED [None]
  - BRONCHITIS [None]
  - DRUG INTERACTION [None]
  - ISCHAEMIC STROKE [None]
